FAERS Safety Report 4751892-8 (Version None)
Quarter: 2005Q3

REPORT INFORMATION
  Report Type: 
  Country: None (occurrence: None)
  Receive Date: 20050822
  Receipt Date: 20050531
  Transmission Date: 20060218
  Serious: No
  Sender: FDA-Public Use
  Company Number: PHEH2005US05433

PATIENT
  Age: 24 Year
  Sex: Female
  Weight: 59.9 kg

DRUGS (5)
  1. ZELNORM [Suspect]
     Indication: IRRITABLE BOWEL SYNDROME
     Dosage: 6 MG, BID
     Dates: start: 20050407
  2. NORINYL 1+35 (ETHINYLESTRADIOL, NORETHISTERONE) [Concomitant]
  3. CLEOCIN [Concomitant]
  4. FLUCONAZOLE [Concomitant]
  5. CHLORPHENIRAMINE W/PSEUDOEPHEDRINE (CHLORPHENAMINE, PSEUDOEPHEDRINE) [Concomitant]

REACTIONS (1)
  - MENORRHAGIA [None]
